FAERS Safety Report 7064601-7 (Version None)
Quarter: 2010Q4

REPORT INFORMATION
  Report Type: 
  Country: None (occurrence: None)
  Receive Date: 20101022
  Receipt Date: 20101022
  Transmission Date: 20110411
  Serious: No
  Sender: FDA-Public Use
  Company Number: None

PATIENT
  Sex: Female
  Weight: 49.8957 kg

DRUGS (1)
  1. TRINESSA TRINESSA DCP 0.1810.215/0.25 MG-35 MCG [Suspect]
     Indication: ORAL CONTRACEPTION
     Dosage: 1 DAILY PO
     Route: 048
     Dates: start: 20100723, end: 20100921

REACTIONS (1)
  - LIBIDO DECREASED [None]
